FAERS Safety Report 25821465 (Version 1)
Quarter: 2025Q3

REPORT INFORMATION
  Report Type: Report from Study
  Country: CA (occurrence: CA)
  Receive Date: 20250919
  Receipt Date: 20250919
  Transmission Date: 20251021
  Serious: Yes (Other)
  Sender: ABBVIE
  Company Number: CA-ABBVIE-6460792

PATIENT
  Age: 21 Year
  Sex: Female
  Weight: 38 kg

DRUGS (1)
  1. SKYRIZI [Suspect]
     Active Substance: RISANKIZUMAB-RZAA
     Indication: Crohn^s disease
     Route: 058

REACTIONS (5)
  - Intestinal resection [Unknown]
  - Diarrhoea [Unknown]
  - Herpes simplex [Unknown]
  - Stress [Unknown]
  - Oral disorder [Unknown]

NARRATIVE: CASE EVENT DATE: 20230101
